FAERS Safety Report 4697139-2 (Version None)
Quarter: 2005Q2

REPORT INFORMATION
  Report Type: 
  Country: None (occurrence: None)
  Receive Date: 20050622
  Receipt Date: 20050610
  Transmission Date: 20051028
  Serious: Yes (Other)
  Sender: FDA-Public Use
  Company Number: US-ROCHE-407438

PATIENT
  Age: 82 Year
  Sex: Female
  Weight: 45.4 kg

DRUGS (6)
  1. BONIVA [Suspect]
     Indication: OSTEOPOROSIS
     Dosage: FORM: PILL
     Route: 048
     Dates: start: 20050523
  2. RELAFEN [Suspect]
     Indication: ARTHRITIS
     Route: 048
  3. RELAFEN [Suspect]
     Dosage: DOSE WAS INCREASED.
     Route: 048
  4. BLOOD PRESSURE MEDICATIONS NOS [Concomitant]
     Dosage: TWO BLOOD PRESSURE MEDICATIONS NOS
     Route: 048
  5. ANTIGLAUCOMA AGENTS NOS [Concomitant]
     Indication: GLAUCOMA
     Dosage: TWO GLAUCOMA MEDICATIONS NOS
  6. THYROID TAB [Concomitant]

REACTIONS (5)
  - ANOREXIA [None]
  - CRYING [None]
  - DEPRESSION [None]
  - DIZZINESS [None]
  - SUICIDAL IDEATION [None]
